FAERS Safety Report 5637852-3 (Version None)
Quarter: 2008Q1

REPORT INFORMATION
  Report Type: 
  Country: None (occurrence: None)
  Receive Date: 20080131
  Receipt Date: 20071102
  Transmission Date: 20080703
  Serious: No
  Sender: FDA-Public Use
  Company Number: 163-21880-07110215

PATIENT
  Age: 56 Year
  Sex: Male

DRUGS (2)
  1. REVLIMID [Suspect]
     Indication: MULTIPLE MYELOMA
     Dosage: 25 MG, DAILY ON DAYS 1-21 EVERY 28 DAYS, ORAL ; 10 MG, DAILY ON DAYS 1-21 EVERY 28 DAYS, ORAL
     Route: 048
     Dates: start: 20071010, end: 20071101
  2. REVLIMID [Suspect]
     Indication: MULTIPLE MYELOMA
     Dosage: 25 MG, DAILY ON DAYS 1-21 EVERY 28 DAYS, ORAL ; 10 MG, DAILY ON DAYS 1-21 EVERY 28 DAYS, ORAL
     Route: 048
     Dates: start: 20071106

REACTIONS (7)
  - CHILLS [None]
  - COUGH [None]
  - FATIGUE [None]
  - INSOMNIA [None]
  - MUSCLE SPASMS [None]
  - PHARYNGOLARYNGEAL PAIN [None]
  - TREMOR [None]
